FAERS Safety Report 8819538 (Version 5)
Quarter: 2013Q2

REPORT INFORMATION
  Report Type: Spontaneous
  Country: US (occurrence: US)
  Receive Date: 20121002
  Receipt Date: 20130522
  Transmission Date: 20140414
  Serious: Yes (Other)
  Sender: FDA-Public Use
  Company Number: US-PFIZER INC-2012239359

PATIENT
  Age: 64 Year
  Sex: Female

DRUGS (9)
  1. LEVOXYL [Suspect]
     Indication: HYPOTHYROIDISM
     Dosage: 88 UG, UNK
     Route: 048
     Dates: start: 20100715, end: 20110128
  2. LEVOXYL [Suspect]
     Indication: THYROID DISORDER
     Dosage: 100 UG, UNK
     Route: 048
     Dates: start: 20110628, end: 20120417
  3. LEVOXYL [Suspect]
     Dosage: 88 UG, UNK
     Route: 048
     Dates: start: 20120509
  4. LEVOXYL [Suspect]
     Dosage: UNK
     Route: 048
     Dates: start: 201301, end: 201301
  5. CENTRUM [Concomitant]
     Dosage: 1 DF, 1X/DAY
     Route: 048
  6. KONSYL [Concomitant]
     Dosage: MIX AND DRINK 1 PACKET, 2X/DAY
  7. SYNTHROID [Concomitant]
     Dosage: 88 UG, 1X/DAY
     Route: 048
  8. LEVOTHROID [Concomitant]
     Dosage: 100 UG, 1X/DAY
     Route: 048
  9. OMEGA 3 [Concomitant]
     Dosage: 1 DF, 1X/DAY
     Route: 048

REACTIONS (9)
  - Hypertension [Unknown]
  - Joint injury [Unknown]
  - Headache [Not Recovered/Not Resolved]
  - Nervousness [Unknown]
  - Feeling abnormal [Unknown]
  - Dizziness [Unknown]
  - Emotional disorder [Unknown]
  - Malaise [Unknown]
  - Feeling abnormal [Unknown]
